FAERS Safety Report 6750105-5 (Version None)
Quarter: 2010Q2

REPORT INFORMATION
  Report Type: 
  Country: None (occurrence: None)
  Receive Date: 20100601
  Receipt Date: 20100526
  Transmission Date: 20101027
  Serious: Yes (Hospitalization)
  Sender: FDA-Public Use
  Company Number: FR-KINGPHARMUSA00001-K201000651

PATIENT
  Age: 76 Year
  Sex: Female

DRUGS (6)
  1. ALTACE [Suspect]
     Indication: HYPERTENSION
     Dosage: 5 MG, QD, UNK
  2. METFORMIN HCL [Concomitant]
  3. AMILORIDE HCL AND HYDROCHLOROTHIAZIDE [Concomitant]
  4. GLUCOSAMINE [Concomitant]
  5. TRIMETAZIDINE [Concomitant]
  6. ACENOCOUMAROL [Concomitant]

REACTIONS (7)
  - ABDOMINAL PAIN UPPER [None]
  - DIZZINESS [None]
  - HYPONATRAEMIA [None]
  - INAPPROPRIATE ANTIDIURETIC HORMONE SECRETION [None]
  - MALAISE [None]
  - NAUSEA [None]
  - VOMITING [None]
